FAERS Safety Report 24692826 (Version 1)
Quarter: 2024Q4

REPORT INFORMATION
  Report Type: Spontaneous
  Country: US (occurrence: US)
  Receive Date: 20241203
  Receipt Date: 20241203
  Transmission Date: 20250115
  Serious: Yes (Life-Threatening, Hospitalization, Other)
  Sender: TG THERAPEUTICS
  Company Number: US-TG THERAPEUTICS INC.-TGT004288

PATIENT

DRUGS (2)
  1. BRIUMVI [Suspect]
     Active Substance: UBLITUXIMAB-XIIY
     Indication: Product used for unknown indication
     Dosage: UNK
     Route: 042
     Dates: start: 20240430, end: 20240430
  2. BRIUMVI [Suspect]
     Active Substance: UBLITUXIMAB-XIIY
     Dosage: UNK
     Route: 042
     Dates: start: 20240512, end: 20240512

REACTIONS (8)
  - Sepsis [Unknown]
  - Urosepsis [Unknown]
  - Pneumonia [Unknown]
  - Depression [Unknown]
  - Postoperative wound infection [Unknown]
  - Bedridden [Unknown]
  - Infusion related reaction [Unknown]
  - Multiple sclerosis relapse [Unknown]

NARRATIVE: CASE EVENT DATE: 20240101
